FAERS Safety Report 19758200 (Version 1)
Quarter: 2021Q3

REPORT INFORMATION
  Report Type: Not Available
  Country: US (occurrence: None)
  Receive Date: 20210827
  Receipt Date: 20210827
  Transmission Date: 20211014
  Serious: No
  Sender: FDA-Public Use
  Company Number: US-AKORN-170745

PATIENT

DRUGS (1)
  1. OFLOXACIN OPHTHALMIC SOLUTION USP, 0.3% [Suspect]
     Active Substance: OFLOXACIN

REACTIONS (1)
  - Infection [Unknown]
